FAERS Safety Report 5924603-8 (Version None)
Quarter: 2008Q4

REPORT INFORMATION
  Report Type: 
  Country: None (occurrence: None)
  Receive Date: 20081016
  Receipt Date: 20081002
  Transmission Date: 20090506
  Serious: Yes (Other)
  Sender: FDA-Public Use
  Company Number: 2008S1009838

PATIENT
  Age: 64 Year
  Sex: Male

DRUGS (1)
  1. PHOSPHOSODA FLAVOR NOT SPECIFIED [Suspect]
     Indication: NEPHRECTOMY
     Dosage: 45 ML: X1; PO
     Route: 048
     Dates: start: 20051017, end: 20051017

REACTIONS (1)
  - BLOOD CREATININE INCREASED [None]
